FAERS Safety Report 12288408 (Version 1)
Quarter: 2016Q2

REPORT INFORMATION
  Report Type: Spontaneous
  Country: US (occurrence: US)
  Receive Date: 20160420
  Receipt Date: 20160420
  Transmission Date: 20160815
  Serious: Yes (Hospitalization)
  Sender: FDA-Public Use
  Company Number: US-ASTRAZENECA-2016SE40218

PATIENT
  Sex: Female
  Weight: 54.4 kg

DRUGS (8)
  1. XANAX [Concomitant]
     Active Substance: ALPRAZOLAM
     Indication: MUSCLE RELAXANT THERAPY
     Route: 048
  2. COATED ASPIRIN [Concomitant]
     Active Substance: ASPIRIN
     Indication: PAIN
     Route: 048
  3. NEXIUM [Suspect]
     Active Substance: ESOMEPRAZOLE MAGNESIUM
     Indication: GASTROOESOPHAGEAL REFLUX DISEASE
     Dosage: 2 TIMES A DAY
     Route: 048
  4. TOPROL XL [Suspect]
     Active Substance: METOPROLOL SUCCINATE
     Indication: BLOOD PRESSURE ABNORMAL
     Dosage: UNKNOWN
     Route: 048
  5. XANAX [Concomitant]
     Active Substance: ALPRAZOLAM
     Indication: AGORAPHOBIA
     Route: 048
  6. NEXIUM [Suspect]
     Active Substance: ESOMEPRAZOLE MAGNESIUM
     Indication: GASTROOESOPHAGEAL REFLUX DISEASE
     Route: 048
  7. NEXIUM [Suspect]
     Active Substance: ESOMEPRAZOLE MAGNESIUM
     Indication: GASTROOESOPHAGEAL REFLUX DISEASE
     Dosage: GENERIC,40 MG,DAILY
     Route: 048
  8. XANAX [Concomitant]
     Active Substance: ALPRAZOLAM
     Indication: PANIC ATTACK
     Route: 048

REACTIONS (14)
  - Muscle spasms [Unknown]
  - Abdominal discomfort [Unknown]
  - Aortic stenosis [Unknown]
  - Visual acuity reduced [Unknown]
  - Off label use [Unknown]
  - Colitis ischaemic [Unknown]
  - Abasia [Unknown]
  - Abdominal distension [Unknown]
  - Dizziness [Unknown]
  - Body height decreased [Unknown]
  - Intentional product misuse [Unknown]
  - Chondrocalcinosis pyrophosphate [Unknown]
  - Weight decreased [Unknown]
  - Hypotension [Unknown]
